FAERS Safety Report 11131300 (Version 1)
Quarter: 2015Q2

REPORT INFORMATION
  Report Type: Report from Study
  Country: FR (occurrence: FR)
  Receive Date: 20150522
  Receipt Date: 20150522
  Transmission Date: 20150821
  Serious: Yes (Death, Hospitalization)
  Sender: FDA-Public Use
  Company Number: FR-ROCHE-1160575

PATIENT
  Age: 78 Year
  Sex: Male

DRUGS (7)
  1. RITUXIMAB [Suspect]
     Active Substance: RITUXIMAB
     Indication: RHEUMATOID ARTHRITIS
     Dosage: DAY1
     Route: 042
     Dates: start: 20061213
  2. METHOTREXATE [Concomitant]
     Active Substance: METHOTREXATE
     Route: 065
  3. RITUXIMAB [Suspect]
     Active Substance: RITUXIMAB
     Dosage: DAY 15
     Route: 042
     Dates: start: 20070122
  4. RITUXIMAB [Suspect]
     Active Substance: RITUXIMAB
     Dosage: DAY1
     Route: 042
     Dates: start: 20070808
  5. RITUXIMAB [Suspect]
     Active Substance: RITUXIMAB
     Dosage: DAY1
     Route: 042
     Dates: start: 20070723
  6. RITUXIMAB [Suspect]
     Active Substance: RITUXIMAB
     Route: 042
     Dates: start: 20080609
  7. RITUXIMAB [Suspect]
     Active Substance: RITUXIMAB
     Route: 042
     Dates: start: 20080623

REACTIONS (10)
  - Clostridium difficile colitis [Recovered/Resolved]
  - Osteitis [Unknown]
  - Chronic sinusitis [Recovered/Resolved]
  - Pharyngitis [Recovered/Resolved]
  - Urinary tract infection [Recovered/Resolved]
  - Angina pectoris [Not Recovered/Not Resolved]
  - Bronchitis [Not Recovered/Not Resolved]
  - Cardiac disorder [Fatal]
  - Cyst [Recovered/Resolved]
  - Anaemia [Not Recovered/Not Resolved]

NARRATIVE: CASE EVENT DATE: 200805
